FAERS Safety Report 8159499-X (Version None)
Quarter: 2012Q1

REPORT INFORMATION
  Report Type: 
  Country: None (occurrence: None)
  Receive Date: 20120223
  Receipt Date: 20120216
  Transmission Date: 20120608
  Serious: Yes (Other)
  Sender: FDA-Public Use
  Company Number: BR-ROCHE-1013584

PATIENT
  Sex: Female

DRUGS (15)
  1. XOLAIR [Suspect]
     Indication: ASTHMA
     Dates: start: 20101101
  2. DOMPERIDONE [Concomitant]
  3. LEXOTAN [Concomitant]
  4. FLUTICASONE PROPIONATE/SALMETEROL [Concomitant]
     Dosage: 50/500 UG
  5. LORATADINE [Concomitant]
  6. PRELONE [Suspect]
  7. LOSARTAN POTASSIUM [Concomitant]
  8. PANTOPRAZOLE [Concomitant]
  9. XOLAIR [Suspect]
     Dates: start: 20110829
  10. XOLAIR [Suspect]
     Dates: start: 20111201
  11. COMBIVENT [Concomitant]
  12. HYDROCHLOROTHIAZIDE [Concomitant]
  13. VERAPAMIL [Concomitant]
  14. PRELONE [Suspect]
     Indication: PRODUCT USED FOR UNKNOWN INDICATION
     Dates: start: 20110920, end: 20111025
  15. ACETAMINOPHEN [Concomitant]

REACTIONS (15)
  - OBSTRUCTIVE AIRWAYS DISORDER [None]
  - FATIGUE [None]
  - LUNG DISORDER [None]
  - TACHYCARDIA [None]
  - DECREASED IMMUNE RESPONSIVENESS [None]
  - RHINITIS ALLERGIC [None]
  - TREMOR [None]
  - INSOMNIA [None]
  - RESPIRATORY DISTRESS [None]
  - GAIT DISTURBANCE [None]
  - LACRIMATION INCREASED [None]
  - DYSPHONIA [None]
  - ASTHMA [None]
  - HERPES ZOSTER [None]
  - MUSCLE SPASMS [None]
